FAERS Safety Report 5893272-8 (Version None)
Quarter: 2008Q3

REPORT INFORMATION
  Report Type: 
  Country: None (occurrence: None)
  Receive Date: 20080923
  Receipt Date: 20080915
  Transmission Date: 20090109
  Serious: Yes (Hospitalization, Congenital Anomaly)
  Sender: FDA-Public Use
  Company Number: A0738011A

PATIENT
  Sex: Male
  Weight: 3.2 kg

DRUGS (5)
  1. PAXIL [Suspect]
     Indication: DEPRESSION
     Dosage: 20MG PER DAY
     Dates: start: 19950201, end: 19970501
  2. VITAMIN TAB [Concomitant]
  3. ANTIBIOTIC [Concomitant]
  4. VENTOLIN [Concomitant]
  5. AMOXICILLIN [Concomitant]

REACTIONS (7)
  - CRYPTORCHISM [None]
  - DRUG EXPOSURE DURING PREGNANCY [None]
  - EAGLE BARRETT SYNDROME [None]
  - HYDRONEPHROSIS [None]
  - KIDNEY MALFORMATION [None]
  - RENAL DISORDER [None]
  - TALIPES [None]
